FAERS Safety Report 12515578 (Version 2)
Quarter: 2016Q3

REPORT INFORMATION
  Report Type: Spontaneous
  Country: US (occurrence: US)
  Receive Date: 20160630
  Receipt Date: 20160912
  Transmission Date: 20161109
  Serious: Yes (Hospitalization)
  Sender: FDA-Public Use
  Company Number: US-JNJFOC-20160502860

PATIENT
  Age: 69 Year
  Sex: Female

DRUGS (2)
  1. XARELTO [Suspect]
     Active Substance: RIVAROXABAN
     Indication: THROMBOSIS PROPHYLAXIS
     Dosage: DOSE: 15 MG, 20 MG.
     Route: 048
     Dates: start: 20130923, end: 20140203
  2. XARELTO [Suspect]
     Active Substance: RIVAROXABAN
     Indication: THROMBOSIS PROPHYLAXIS
     Dosage: DOSE: 15 MG, 20 MG.
     Route: 048
     Dates: start: 20130923, end: 20140203

REACTIONS (2)
  - Diverticulitis intestinal haemorrhagic [Unknown]
  - Epistaxis [Unknown]

NARRATIVE: CASE EVENT DATE: 20140203
